FAERS Safety Report 6701951-5 (Version None)
Quarter: 2010Q2

REPORT INFORMATION
  Report Type: 
  Country: None (occurrence: None)
  Receive Date: 20100427
  Receipt Date: 20100413
  Transmission Date: 20101027
  Serious: Yes (Other)
  Sender: FDA-Public Use
  Company Number: 008482

PATIENT
  Sex: Female
  Weight: 100 kg

DRUGS (4)
  1. CIMZIA [Suspect]
     Indication: CROHN'S DISEASE
     Dosage: SUBCUTANEOUS, SUBCUTANEOUS
     Route: 058
     Dates: start: 20091201, end: 20100201
  2. LEVAQUIN [Concomitant]
  3. FLAGYL [Concomitant]
  4. AUGMENTIN '125' [Concomitant]

REACTIONS (1)
  - COLECTOMY [None]
